FAERS Safety Report 13839251 (Version 1)
Quarter: 2017Q3

REPORT INFORMATION
  Report Type: Spontaneous
  Country: US (occurrence: US)
  Receive Date: 20170806
  Receipt Date: 20170806
  Transmission Date: 20171127
  Serious: No
  Sender: FDA-Public Use
  Company Number: None

PATIENT
  Age: 29 Year
  Sex: Female
  Weight: 97.61 kg

DRUGS (1)
  1. SKYLA [Suspect]
     Active Substance: LEVONORGESTREL

REACTIONS (5)
  - Vaginal haemorrhage [None]
  - Anxiety [None]
  - Mood swings [None]
  - Device dislocation [None]
  - Weight increased [None]

NARRATIVE: CASE EVENT DATE: 20150628
